FAERS Safety Report 9080531 (Version 2)
Quarter: 2013Q1

REPORT INFORMATION
  Report Type: Spontaneous
  Country: US (occurrence: US)
  Receive Date: 20130130
  Receipt Date: 20130226
  Transmission Date: 20140127
  Serious: Yes (Other)
  Sender: FDA-Public Use
  Company Number: US-TEVA-382790USA

PATIENT
  Age: 55 Year
  Sex: Male
  Weight: 102.15 kg

DRUGS (2)
  1. NUVIGIL [Suspect]
     Indication: FATIGUE
     Route: 048
     Dates: start: 20130117
  2. CRESTOR [Concomitant]
     Indication: BLOOD CHOLESTEROL INCREASED

REACTIONS (3)
  - Swelling face [Not Recovered/Not Resolved]
  - Lip swelling [Not Recovered/Not Resolved]
  - Off label use [Unknown]
